FAERS Safety Report 7609767-2 (Version None)
Quarter: 2011Q3

REPORT INFORMATION
  Report Type: 
  Country: None (occurrence: None)
  Receive Date: 20110714
  Receipt Date: 20110608
  Transmission Date: 20111222
  Serious: Yes (Hospitalization)
  Sender: FDA-Public Use
  Company Number: PHHO2007DE16538

PATIENT
  Sex: Female
  Weight: 76 kg

DRUGS (1)
  1. ILARIS [Suspect]
     Indication: RHEUMATOID ARTHRITIS
     Dosage: 600MG I.V+300MG S.C Q2WK
     Dates: start: 20070924, end: 20070924

REACTIONS (4)
  - PYREXIA [None]
  - RHEUMATOID ARTHRITIS [None]
  - UROSEPSIS [None]
  - HYPERHIDROSIS [None]
